FAERS Safety Report 8800260 (Version 1)
Quarter: 2012Q4

REPORT INFORMATION
  Report Type: 
  Country: US (occurrence: US)
  Receive Date: 20120921
  Receipt Date: 20120921
  Transmission Date: 20130627
  Serious: Yes (Death, Hospitalization)
  Sender: FDA-Public Use
  Company Number: US-ROCHE-1129492

PATIENT
  Sex: Female

DRUGS (3)
  1. AVASTIN [Suspect]
     Indication: HEPATIC NEOPLASM MALIGNANT
     Route: 065
  2. AVASTIN [Suspect]
     Indication: HEPATIC NEOPLASM MALIGNANT
  3. AVASTIN [Suspect]
     Indication: HEPATOBLASTOMA

REACTIONS (3)
  - Death [Fatal]
  - Bronchitis [Unknown]
  - Pulmonary oedema [Unknown]
